FAERS Safety Report 9361502 (Version 1)
Quarter: 2013Q2

REPORT INFORMATION
  Report Type: Report from Study
  Country: US (occurrence: US)
  Receive Date: 20130621
  Receipt Date: 20130621
  Transmission Date: 20140414
  Serious: Yes (Death)
  Sender: FDA-Public Use
  Company Number: US-GILEAD-2013-0077029

PATIENT
  Sex: 0

DRUGS (1)
  1. CIDOFOVIR [Suspect]
     Indication: ADENOVIRAL UPPER RESPIRATORY INFECTION
     Dosage: UNK

REACTIONS (1)
  - Drug ineffective for unapproved indication [Fatal]
